FAERS Safety Report 10761903 (Version 1)
Quarter: 2015Q1

REPORT INFORMATION
  Report Type: Report from Study
  Country: FR (occurrence: FR)
  Receive Date: 20150204
  Receipt Date: 20150204
  Transmission Date: 20150721
  Serious: Yes (Hospitalization)
  Sender: FDA-Public Use
  Company Number: FR-SA-2015SA011669

PATIENT
  Age: 78 Year
  Sex: Male

DRUGS (3)
  1. BLINDED THERAPY [Suspect]
     Active Substance: INVESTIGATIONAL PRODUCT
     Indication: NON-SMALL CELL LUNG CANCER
     Dosage: DOSE: 1 IN 1 CYCLICAL (100 ML, CYCLIC VIA IV INFUSION ON DAY 1,8 AND 15 OF EACH 21 DAY CYCLE
     Route: 042
     Dates: start: 20150108, end: 20150108
  2. BLINDED THERAPY [Suspect]
     Active Substance: INVESTIGATIONAL PRODUCT
     Indication: NON-SMALL CELL LUNG CANCER
     Dosage: DOSE: 1 IN 1 CYCLICAL (100 ML, CYCLIC VIA IV INFUSION ON DAY 1,8 AND 15 OF EACH 21 DAY CYCLE
     Route: 042
     Dates: start: 20150102, end: 20150102
  3. DOCETAXEL. [Suspect]
     Active Substance: DOCETAXEL
     Indication: NON-SMALL CELL LUNG CANCER
     Dosage: DOSE: 1 IN 1 CYCLICAL, 75 MG/M2 CYCLIC IV INFUSION ON DAY 1 OF EACH 21 DAY CYCLE
     Dates: start: 20150102, end: 20150102

REACTIONS (1)
  - Anal fissure [Unknown]

NARRATIVE: CASE EVENT DATE: 20150112
